FAERS Safety Report 6924932-5 (Version None)
Quarter: 2010Q3

REPORT INFORMATION
  Report Type: 
  Country: None (occurrence: None)
  Receive Date: 20100816
  Receipt Date: 20100806
  Transmission Date: 20110219
  Serious: Yes (Hospitalization)
  Sender: FDA-Public Use
  Company Number: CH-JNJFOC-20100801417

PATIENT
  Age: 25 Year
  Sex: Male

DRUGS (3)
  1. HALDOL [Suspect]
     Indication: SCHIZOPHRENIA, PARANOID TYPE
     Route: 030
  2. RISPERDAL CONSTA [Suspect]
     Indication: PRODUCT USED FOR UNKNOWN INDICATION
     Route: 065
  3. NOZINAN [Suspect]
     Indication: SCHIZOPHRENIA, PARANOID TYPE
     Route: 030

REACTIONS (3)
  - NEUROLEPTIC MALIGNANT SYNDROME [None]
  - PSYCHOTIC DISORDER [None]
  - TREATMENT NONCOMPLIANCE [None]
